FAERS Safety Report 7990536-9 (Version None)
Quarter: 2011Q4

REPORT INFORMATION
  Report Type: 
  Country: None (occurrence: None)
  Receive Date: 20111219
  Receipt Date: 20110523
  Transmission Date: 20120403
  Serious: No
  Sender: FDA-Public Use
  Company Number: US-ASTRAZENECA-2011SE32119

PATIENT
  Age: 79 Year
  Sex: Female

DRUGS (2)
  1. LISINOPRIL [Concomitant]
  2. CRESTOR [Suspect]
     Route: 048

REACTIONS (3)
  - MYALGIA [None]
  - HYPOAESTHESIA [None]
  - MUSCULAR WEAKNESS [None]
